FAERS Safety Report 6239372-4 (Version None)
Quarter: 2009Q2

REPORT INFORMATION
  Report Type: 
  Country: None (occurrence: None)
  Receive Date: 20090622
  Receipt Date: 20090613
  Transmission Date: 20091009
  Serious: Yes (Hospitalization, Other)
  Sender: FDA-Public Use
  Company Number: US-PFIZER INC-2009209356

PATIENT
  Sex: Female

DRUGS (1)
  1. DILANTIN [Suspect]

REACTIONS (3)
  - DRUG LEVEL INCREASED [None]
  - GASTRIC DISORDER [None]
  - WRONG TECHNIQUE IN DRUG USAGE PROCESS [None]
